FAERS Safety Report 7606784-3 (Version None)
Quarter: 2011Q3

REPORT INFORMATION
  Report Type: 
  Country: None (occurrence: None)
  Receive Date: 20110713
  Receipt Date: 20110616
  Transmission Date: 20111222
  Serious: Yes (Other)
  Sender: FDA-Public Use
  Company Number: US-GLAXOSMITHKLINE-A0806146A

PATIENT
  Age: 37 Year
  Sex: Male

DRUGS (1)
  1. AVANDIA [Suspect]
     Indication: DIABETES MELLITUS
     Dosage: 8MG PER DAY
     Route: 048
     Dates: start: 20000101, end: 20070101

REACTIONS (7)
  - ARTERIAL DISORDER [None]
  - WEIGHT INCREASED [None]
  - ANGINA PECTORIS [None]
  - STRESS [None]
  - MYOCARDIAL INFARCTION [None]
  - JOINT SWELLING [None]
  - CARDIAC DISORDER [None]
